FAERS Safety Report 14530485 (Version 2)
Quarter: 2018Q2

REPORT INFORMATION
  Report Type: Spontaneous
  Country: US (occurrence: US)
  Receive Date: 20180214
  Receipt Date: 20180422
  Transmission Date: 20180711
  Serious: No
  Sender: FDA-Public Use
  Company Number: US-APOTEX-2017AP022227

PATIENT
  Age: 6 Year
  Sex: Female

DRUGS (9)
  1. QUETIAPINE FUMARATE. [Suspect]
     Active Substance: QUETIAPINE FUMARATE
     Indication: ABNORMAL BEHAVIOUR
     Dosage: UNK
     Route: 065
  2. ESCITALOPRAM OXALATE. [Suspect]
     Active Substance: ESCITALOPRAM OXALATE
     Indication: ABNORMAL BEHAVIOUR
     Dosage: UNK
     Route: 065
  3. GUANFACINE. [Suspect]
     Active Substance: GUANFACINE
     Indication: ABNORMAL BEHAVIOUR
     Dosage: UNK
     Route: 065
  4. RISPERIDONE. [Suspect]
     Active Substance: RISPERIDONE
     Indication: PSYCHOMOTOR HYPERACTIVITY
  5. ZIPRASIDONE HCL [Suspect]
     Active Substance: ZIPRASIDONE HYDROCHLORIDE
     Indication: ABNORMAL BEHAVIOUR
     Dosage: UNK
     Route: 065
  6. BUSPIPRONE HYDROCHLORIDE TABLETS USP [Suspect]
     Active Substance: BUSPIRONE HYDROCHLORIDE
     Indication: ABNORMAL BEHAVIOUR
     Dosage: UNK
     Route: 065
  7. RISPERIDONE. [Suspect]
     Active Substance: RISPERIDONE
     Indication: ABNORMAL BEHAVIOUR
     Dosage: UNK
     Route: 065
  8. ARIPIPRAZOLE TABLETS [Suspect]
     Active Substance: ARIPIPRAZOLE
     Indication: ABNORMAL BEHAVIOUR
     Dosage: UNK
     Route: 065
  9. METHYLPHENIDATE. [Suspect]
     Active Substance: METHYLPHENIDATE
     Indication: ABNORMAL BEHAVIOUR
     Dosage: UNK
     Route: 065

REACTIONS (4)
  - Precocious puberty [Unknown]
  - Drug effect incomplete [Unknown]
  - Drug ineffective [Unknown]
  - Weight increased [Unknown]
